FAERS Safety Report 21598321 (Version 1)
Quarter: 2022Q4

REPORT INFORMATION
  Report Type: Report from Study
  Country: US (occurrence: US)
  Receive Date: 20221115
  Receipt Date: 20221115
  Transmission Date: 20230113
  Serious: No
  Sender: FDA-Public Use
  Company Number: US-ABBVIE-4139123

PATIENT
  Age: 54 Year
  Sex: Female

DRUGS (4)
  1. HUMIRA [Suspect]
     Active Substance: ADALIMUMAB
     Indication: Psoriatic arthropathy
     Route: 058
  2. Pfizer/BioNTech [Concomitant]
     Indication: COVID-19 immunisation
     Dosage: FIRST DOSE,?ONE IN ONCE
     Route: 030
     Dates: start: 20210308, end: 20210308
  3. Pfizer/BioNTech [Concomitant]
     Indication: COVID-19 immunisation
     Dosage: SECOND DOSE,?ONE IN ONCE
     Route: 030
     Dates: start: 20210330, end: 20210330
  4. Pfizer/BioNTech [Concomitant]
     Indication: COVID-19 immunisation
     Dosage: ONE IN ONCE,?THIRD DOSE
     Route: 030
     Dates: start: 20211126, end: 20211126

REACTIONS (5)
  - Influenza [Recovered/Resolved]
  - Psoriatic arthropathy [Unknown]
  - COVID-19 [Recovered/Resolved]
  - Photosensitivity reaction [Unknown]
  - Nasopharyngitis [Unknown]

NARRATIVE: CASE EVENT DATE: 20210119
